FAERS Safety Report 9648067 (Version 2)
Quarter: 2014Q1

REPORT INFORMATION
  Report Type: Spontaneous
  Country: US (occurrence: US)
  Receive Date: 20131028
  Receipt Date: 20140117
  Transmission Date: 20141002
  Serious: No
  Sender: FDA-Public Use
  Company Number: US-PFIZER INC-2013304719

PATIENT
  Age: 43 Year
  Sex: Female

DRUGS (1)
  1. LIPITOR [Suspect]
     Dosage: 40 MG, UNK
     Dates: start: 20131001

REACTIONS (2)
  - Hypothyroidism [Unknown]
  - Alopecia [Unknown]
